FAERS Safety Report 24540836 (Version 1)
Quarter: 2024Q4

REPORT INFORMATION
  Report Type: Spontaneous
  Country: BR (occurrence: BR)
  Receive Date: 20241023
  Receipt Date: 20241023
  Transmission Date: 20250115
  Serious: Yes (Hospitalization, Other)
  Sender: ROCHE
  Company Number: BR-ROCHE-10000109810

PATIENT
  Age: 75 Year
  Sex: Male

DRUGS (10)
  1. RITUXIMAB [Suspect]
     Active Substance: RITUXIMAB
     Indication: Diffuse large B-cell lymphoma
     Route: 065
  2. POLATUZUMAB VEDOTIN [Suspect]
     Active Substance: POLATUZUMAB VEDOTIN
     Indication: Diffuse large B-cell lymphoma
     Route: 065
  3. CYCLOPHOSPHAMIDE [Concomitant]
     Active Substance: CYCLOPHOSPHAMIDE
     Indication: Diffuse large B-cell lymphoma
  4. DOXORUBICIN [Concomitant]
     Active Substance: DOXORUBICIN
     Indication: Diffuse large B-cell lymphoma
  5. PREDNISONE [Concomitant]
     Active Substance: PREDNISONE
     Indication: Diffuse large B-cell lymphoma
  6. PEGFILGRASTIM [Concomitant]
     Active Substance: PEGFILGRASTIM
     Indication: Diffuse large B-cell lymphoma
  7. METHOTREXATE [Concomitant]
     Active Substance: METHOTREXATE
     Indication: Diffuse large B-cell lymphoma
  8. CYTARABINE [Concomitant]
     Active Substance: CYTARABINE
     Indication: Diffuse large B-cell lymphoma
  9. DEXAMETHASONE [Concomitant]
     Active Substance: DEXAMETHASONE
     Indication: Diffuse large B-cell lymphoma
  10. THIOGUANINE [Concomitant]
     Active Substance: THIOGUANINE
     Indication: Diffuse large B-cell lymphoma

REACTIONS (13)
  - Febrile neutropenia [Unknown]
  - Stomatitis [Unknown]
  - Pseudomonas test positive [Unknown]
  - Sinusitis [Unknown]
  - Pyrexia [Unknown]
  - Dizziness [Unknown]
  - Syncope [Unknown]
  - Thrombocytopenia [Unknown]
  - COVID-19 [Unknown]
  - Subdural haematoma [Unknown]
  - Seizure [Unknown]
  - Meningeal thickening [Unknown]
  - Neoplasm [Unknown]
